FAERS Safety Report 10419446 (Version 2)
Quarter: 2014Q3

REPORT INFORMATION
  Report Type: Report from Study
  Country: US (occurrence: US)
  Receive Date: 20140829
  Receipt Date: 20140916
  Transmission Date: 20150326
  Serious: Yes (Other)
  Sender: FDA-Public Use
  Company Number: US-ABBVIE-14K-163-1276350-00

PATIENT
  Age: 36 Year
  Sex: Female
  Weight: 114.41 kg

DRUGS (4)
  1. FERTILITY DRUGS [Concomitant]
     Indication: PRODUCT USED FOR UNKNOWN INDICATION
  2. PREDNISONE. [Concomitant]
     Active Substance: PREDNISONE
     Indication: RHEUMATOID ARTHRITIS
     Dates: start: 201101
  3. PRENATAL VITAMINS [Concomitant]
     Active Substance: VITAMINS
     Indication: PRODUCT USED FOR UNKNOWN INDICATION
  4. HUMIRA [Suspect]
     Active Substance: ADALIMUMAB
     Indication: RHEUMATOID ARTHRITIS
     Dosage: OFF AND ON
     Dates: start: 200412, end: 201101

REACTIONS (7)
  - Prolonged labour [Unknown]
  - Prolonged labour [Recovered/Resolved]
  - Arthralgia [Not Recovered/Not Resolved]
  - Uterine hypotonus [Recovered/Resolved]
  - Premature labour [Recovered/Resolved]
  - Rheumatoid factor increased [Not Recovered/Not Resolved]
  - Joint stiffness [Not Recovered/Not Resolved]

NARRATIVE: CASE EVENT DATE: 20120406
